FAERS Safety Report 25996891 (Version 1)
Quarter: 2025Q4

REPORT INFORMATION
  Report Type: Spontaneous
  Country: US (occurrence: None)
  Receive Date: 20251104
  Receipt Date: 20251104
  Transmission Date: 20260118
  Serious: Yes (Hospitalization, Disabling)
  Sender: FDA-CTU
  Company Number: None

PATIENT
  Age: 52 Year
  Sex: Female
  Weight: 148.5 kg

DRUGS (1)
  1. DUPIXENT [Suspect]
     Active Substance: DUPILUMAB
     Indication: Eczema
     Dosage: OTHER FREQUENCY : 2 TIMES PER MONTH;?
     Route: 030
     Dates: end: 20250430

REACTIONS (5)
  - Skin ulcer [None]
  - Eczema [None]
  - Adverse drug reaction [None]
  - Hypersensitivity [None]
  - Diarrhoea [None]

NARRATIVE: CASE EVENT DATE: 20240901
